FAERS Safety Report 16991135 (Version 2)
Quarter: 2019Q4

REPORT INFORMATION
  Report Type: Report from Study
  Country: JP (occurrence: JP)
  Receive Date: 20191104
  Receipt Date: 20191114
  Transmission Date: 20200122
  Serious: Yes (Hospitalization)
  Sender: FDA-Public Use
  Company Number: JP-EISAI MEDICAL RESEARCH-EC-2019-064540

PATIENT
  Age: 56 Year
  Sex: Male
  Weight: 56 kg

DRUGS (10)
  1. PHENYTOIN. [Concomitant]
     Active Substance: PHENYTOIN
  2. CLOBAZAM. [Concomitant]
     Active Substance: CLOBAZAM
  3. FYCOMPA [Suspect]
     Active Substance: PERAMPANEL
     Route: 048
     Dates: start: 20181016, end: 20181022
  4. DIAZEPAM. [Concomitant]
     Active Substance: DIAZEPAM
  5. FYCOMPA [Suspect]
     Active Substance: PERAMPANEL
     Indication: PARTIAL SEIZURES
     Route: 048
     Dates: start: 20180119, end: 20180329
  6. ACETAZOLAMIDE. [Concomitant]
     Active Substance: ACETAZOLAMIDE
  7. TOPIRAMATE. [Concomitant]
     Active Substance: TOPIRAMATE
  8. ZONISAMIDE. [Concomitant]
     Active Substance: ZONISAMIDE
     Route: 048
  9. FYCOMPA [Suspect]
     Active Substance: PERAMPANEL
     Route: 048
     Dates: start: 20180330, end: 20181015
  10. RISPERIDONE. [Concomitant]
     Active Substance: RISPERIDONE

REACTIONS (2)
  - Hallucination, auditory [Recovering/Resolving]
  - Restlessness [Recovering/Resolving]

NARRATIVE: CASE EVENT DATE: 20181012
